FAERS Safety Report 14153934 (Version 1)
Quarter: 2017Q4

REPORT INFORMATION
  Report Type: Spontaneous
  Country: DK (occurrence: DK)
  Receive Date: 20171102
  Receipt Date: 20171102
  Transmission Date: 20180321
  Serious: Yes (Hospitalization)
  Sender: FDA-Public Use
  Company Number: DK-PFIZER INC-2017467124

PATIENT
  Age: 22 Year
  Sex: Female

DRUGS (1)
  1. MINPROSTIN [Suspect]
     Active Substance: DINOPROSTONE
     Indication: LABOUR INDUCTION
     Dosage: 3 MG TWO SEPARATE TIMES
     Route: 067
     Dates: start: 20171016, end: 20171016

REACTIONS (2)
  - Uterine hyperstimulation [Recovered/Resolved]
  - Uterine hypertonus [Recovered/Resolved]

NARRATIVE: CASE EVENT DATE: 20171016
